FAERS Safety Report 7619104-5 (Version None)
Quarter: 2011Q3

REPORT INFORMATION
  Report Type: 
  Country: None (occurrence: None)
  Receive Date: 20110718
  Receipt Date: 20110707
  Transmission Date: 20111222
  Serious: Yes (Hospitalization)
  Sender: FDA-Public Use
  Company Number: BR-ASTRAZENECA-2011SE41038

PATIENT
  Sex: Male
  Weight: 140 kg

DRUGS (8)
  1. NEXIUM [Suspect]
     Indication: GASTRITIS
     Route: 048
     Dates: start: 20060101
  2. METFORMIN HCL [Concomitant]
     Indication: DIABETES MELLITUS
     Dates: start: 20010101
  3. ALPRAZOLAM [Concomitant]
  4. CYMBALTA [Concomitant]
  5. NEXIUM [Suspect]
     Route: 048
     Dates: start: 20110501
  6. SEROQUEL [Suspect]
     Indication: DEPRESSION
     Route: 048
     Dates: start: 20110601
  7. LYRICA [Concomitant]
  8. VASOGUARD [Concomitant]

REACTIONS (10)
  - VOMITING [None]
  - DIARRHOEA [None]
  - ABDOMINAL DISCOMFORT [None]
  - DEPRESSION [None]
  - SOMNOLENCE [None]
  - DRUG PRESCRIBING ERROR [None]
  - DEBRIDEMENT [None]
  - NAUSEA [None]
  - LOCALISED INFECTION [None]
  - DIABETES MELLITUS [None]
